FAERS Safety Report 9775540 (Version 1)
Quarter: 2013Q4

REPORT INFORMATION
  Report Type: Spontaneous
  Country: US (occurrence: None)
  Receive Date: 20131218
  Receipt Date: 20131218
  Transmission Date: 20140711
  Serious: Yes (Other)
  Sender: FDA-Public Use
  Company Number: 2013-00156

PATIENT
  Age: 62 Year
  Sex: Male

DRUGS (1)
  1. ZICAM EXTREME CONGESTION RELIEF [Suspect]
     Indication: NASAL CONGESTION
     Dosage: 1 SPRAY INTO EACH NOSTRIL NIGHTLY
     Dates: start: 200612, end: 201311

REACTIONS (6)
  - Dizziness [None]
  - Fatigue [None]
  - Arrhythmia [None]
  - Blood copper decreased [None]
  - Retinal haemorrhage [None]
  - Vision blurred [None]
